FAERS Safety Report 15500241 (Version 1)
Quarter: 2018Q4

REPORT INFORMATION
  Report Type: Spontaneous
  Country: US (occurrence: US)
  Receive Date: 20181015
  Receipt Date: 20181015
  Transmission Date: 20190205
  Serious: Yes (Other)
  Sender: FDA-Public Use
  Company Number: US-HONG KONG KING-FRIEND INDUSTRIAL COMPANY-2018NKF00002

PATIENT
  Age: 38 Year
  Sex: Male

DRUGS (3)
  1. CARBOPLATIN. [Suspect]
     Active Substance: CARBOPLATIN
     Indication: GLIOBLASTOMA MULTIFORME
     Dosage: 880 MG/M2 EVERY 5 WEEKS
     Route: 013
  2. CARBOPLATIN. [Suspect]
     Active Substance: CARBOPLATIN
     Dosage: 880 MG/M2 EVERY 5 WEEKS
     Route: 013
     Dates: start: 201603
  3. BEVACIZUMAB. [Concomitant]
     Active Substance: BEVACIZUMAB
     Dosage: EVERY 5 WEEKS
     Route: 042

REACTIONS (1)
  - Cranial nerve disorder [Not Recovered/Not Resolved]

NARRATIVE: CASE EVENT DATE: 201704
